FAERS Safety Report 25310209 (Version 2)
Quarter: 2025Q4

REPORT INFORMATION
  Report Type: Spontaneous
  Country: US (occurrence: US)
  Receive Date: 20250514
  Receipt Date: 20251205
  Transmission Date: 20260118
  Serious: Yes (Other)
  Sender: COOPERSURGICAL
  Company Number: US-COOPERSURGICAL, INC.-2025CPS003679

PATIENT
  Sex: Female
  Weight: 72.562 kg

DRUGS (2)
  1. PARAGARD T 380A [Suspect]
     Active Substance: COPPER
     Indication: Contraception
     Dosage: UNK
     Route: 015
     Dates: start: 20140414, end: 20201106
  2. ACETAMINOPHEN [Concomitant]
     Active Substance: ACETAMINOPHEN
     Dosage: UNK
     Dates: start: 20140210

REACTIONS (22)
  - Laparoscopy [Recovered/Resolved]
  - Pregnancy with contraceptive device [Recovered/Resolved]
  - Drug ineffective [Unknown]
  - Complication of device removal [Recovered/Resolved]
  - Uterine perforation [Recovered/Resolved]
  - Device dislocation [Recovered/Resolved]
  - Rectal injury [Unknown]
  - Depression [Unknown]
  - Gait inability [Recovered/Resolved]
  - Pain in extremity [Not Recovered/Not Resolved]
  - Sexual dysfunction [Unknown]
  - Emotional disorder [Unknown]
  - Asthenia [Unknown]
  - Urinary tract infection [Not Recovered/Not Resolved]
  - Procedural pain [Unknown]
  - Back pain [Not Recovered/Not Resolved]
  - Dyspareunia [Recovered/Resolved]
  - Abdominal pain [Recovered/Resolved]
  - Pain [Unknown]
  - Menstrual disorder [Unknown]
  - Discomfort [Unknown]
  - Unevaluable event [Not Recovered/Not Resolved]

NARRATIVE: CASE EVENT DATE: 20140101
